FAERS Safety Report 9637924 (Version 2)
Quarter: 2013Q4

REPORT INFORMATION
  Report Type: Report from Study
  Country: US (occurrence: US)
  Receive Date: 20131022
  Receipt Date: 20131022
  Transmission Date: 20140711
  Serious: Yes (Other)
  Sender: FDA-Public Use
  Company Number: US-ROCHE-1283222

PATIENT
  Sex: Female
  Weight: 66.28 kg

DRUGS (15)
  1. HERCEPTIN [Suspect]
     Indication: BREAST CANCER FEMALE
     Route: 065
  2. HERCEPTIN [Suspect]
     Indication: BONE CANCER
  3. XELODA [Suspect]
     Indication: BREAST CANCER FEMALE
     Dosage: 1500 MG IN THE MORNING AND 1000 MG IN THE EVENING ON DAY 1 THROUGH 7, CYCLED ONE EVERY TWO WEEKS
     Route: 065
  4. XELODA [Suspect]
     Indication: BONE CANCER
     Dosage: DOSE REDUCEDUN
     Route: 065
  5. KADCYLA [Suspect]
     Indication: BONE CANCER
     Route: 065
  6. KADCYLA [Suspect]
     Indication: BREAST CANCER FEMALE
  7. TYKERB [Concomitant]
  8. NAVELBINE [Concomitant]
  9. GEMCITABINE [Concomitant]
  10. EPIRUBICIN [Concomitant]
  11. CYTOXAN [Concomitant]
  12. TAXOTERE [Concomitant]
  13. TAMOXIFEN [Concomitant]
  14. ARIMIDEX [Concomitant]
  15. FASLODEX [Concomitant]

REACTIONS (6)
  - Palmar-plantar erythrodysaesthesia syndrome [Unknown]
  - Burning sensation [Not Recovered/Not Resolved]
  - Skin fissures [Not Recovered/Not Resolved]
  - Fatigue [Not Recovered/Not Resolved]
  - Dry skin [Not Recovered/Not Resolved]
  - Hypoaesthesia [Not Recovered/Not Resolved]
